FAERS Safety Report 7119506-X (Version None)
Quarter: 2010Q4

REPORT INFORMATION
  Report Type: 
  Country: None (occurrence: None)
  Receive Date: 20101112
  Receipt Date: 20101026
  Transmission Date: 20110411
  Serious: Yes (Hospitalization)
  Sender: FDA-Public Use
  Company Number: AUR-APL-2010-02665

PATIENT
  Age: 65 Year
  Sex: Female
  Weight: 130 kg

DRUGS (7)
  1. LISINOPRIL [Suspect]
     Dosage: 10 MG
  2. MEFORMIN [Suspect]
     Indication: TYPE 2 DIABETES MELLITUS
     Dosage: 2G
  3. SPIRONOLACTONE [Suspect]
     Dosage: 25 MG
  4. EXENATIDE [Suspect]
     Indication: TYPE 2 DIABETES MELLITUS
     Dosage: 10 MCG BID
  5. LEVEMIR [Concomitant]
  6. ORLISTAT [Concomitant]
  7. FRUSEMIDE [Concomitant]

REACTIONS (7)
  - BLOOD POTASSIUM INCREASED [None]
  - GLYCOSYLATED HAEMOGLOBIN INCREASED [None]
  - HYPOVOLAEMIA [None]
  - NAUSEA [None]
  - NO THERAPEUTIC RESPONSE [None]
  - RENAL FAILURE ACUTE [None]
  - TUBULOINTERSTITIAL NEPHRITIS [None]
